FAERS Safety Report 5382464-2 (Version None)
Quarter: 2007Q3

REPORT INFORMATION
  Report Type: 
  Country: None (occurrence: None)
  Receive Date: 20070705
  Receipt Date: 20060613
  Transmission Date: 20080115
  Serious: Yes (Other)
  Sender: FDA-Public Use
  Company Number: WAES 0606USA02196

PATIENT
  Age: 65 Year
  Sex: Male

DRUGS (1)
  1. HYZAAR [Suspect]
     Dosage: 100-25 MG/PO
     Route: 048

REACTIONS (1)
  - CEREBROVASCULAR ACCIDENT [None]
